FAERS Safety Report 5397545-7 (Version None)
Quarter: 2007Q3

REPORT INFORMATION
  Report Type: 
  Country: None (occurrence: None)
  Receive Date: 20070726
  Receipt Date: 20070713
  Transmission Date: 20080115
  Serious: Yes (Other)
  Sender: FDA-Public Use
  Company Number: NL-AMGEN-US235651

PATIENT
  Age: 50 Year
  Sex: Male

DRUGS (2)
  1. ENBREL [Suspect]
     Indication: RHEUMATOID ARTHRITIS
     Route: 065
  2. LEFLUNOMIDE [Concomitant]
     Route: 065

REACTIONS (5)
  - ARTHRITIS [None]
  - LUNG NEOPLASM [None]
  - PLEURAL EFFUSION [None]
  - RHEUMATOID NODULE [None]
  - SUBCUTANEOUS NODULE [None]
